FAERS Safety Report 11387546 (Version 1)
Quarter: 2015Q3

REPORT INFORMATION
  Report Type: Spontaneous
  Country: IT (occurrence: IT)
  Receive Date: 20150817
  Receipt Date: 20150817
  Transmission Date: 20151125
  Serious: Yes (Hospitalization)
  Sender: FDA-Public Use
  Company Number: IT-SA-2015SA120089

PATIENT
  Age: 21 Year
  Sex: Female

DRUGS (1)
  1. AUBAGIO [Suspect]
     Active Substance: TERIFLUNOMIDE
     Indication: RELAPSING-REMITTING MULTIPLE SCLEROSIS
     Route: 048
     Dates: start: 20141015, end: 20150505

REACTIONS (3)
  - Weight decreased [Recovered/Resolved]
  - Oropharyngeal candidiasis [Recovered/Resolved]
  - Protein C increased [Recovered/Resolved]

NARRATIVE: CASE EVENT DATE: 20150501
